FAERS Safety Report 20326607 (Version 1)
Quarter: 2022Q1

REPORT INFORMATION
  Report Type: Spontaneous
  Country: GB (occurrence: GB)
  Receive Date: 20220112
  Receipt Date: 20220112
  Transmission Date: 20220424
  Serious: Yes (Other)
  Sender: FDA-Public Use
  Company Number: None

PATIENT
  Age: 57 Year
  Sex: Female
  Weight: 57 kg

DRUGS (9)
  1. NYSTATIN [Suspect]
     Active Substance: NYSTATIN
     Indication: Oral candidiasis
     Dosage: 1 ML
     Route: 048
     Dates: start: 202102, end: 202102
  2. NYSTATIN [Suspect]
     Active Substance: NYSTATIN
     Dosage: 1 ML
     Route: 048
     Dates: start: 20210225, end: 20210226
  3. FLUCONAZOLE [Suspect]
     Active Substance: FLUCONAZOLE
     Indication: Oral candidiasis
     Dosage: 50 MG
     Route: 048
     Dates: start: 20210218, end: 20210224
  4. MICONAZOLE NITRATE [Suspect]
     Active Substance: MICONAZOLE NITRATE
     Indication: Oral candidiasis
     Dosage: 20 MG
     Route: 048
     Dates: start: 20210217, end: 20210217
  5. MICONAZOLE [Suspect]
     Active Substance: MICONAZOLE
     Indication: Oral candidiasis
     Dosage: 20 MG
     Route: 048
     Dates: start: 20210217, end: 20210217
  6. TINIDAZOLE [Suspect]
     Active Substance: TINIDAZOLE
     Indication: Oral candidiasis
     Dosage: 20 MG, QD
     Route: 048
     Dates: start: 20210217, end: 20210217
  7. BECLOMETHASONE DIPROPIONATE [Concomitant]
     Active Substance: BECLOMETHASONE DIPROPIONATE
     Indication: Ill-defined disorder
     Dosage: UNK
     Route: 065
  8. ESTRADIOL [Concomitant]
     Active Substance: ESTRADIOL
     Indication: Ill-defined disorder
     Dosage: UNK
     Route: 065
  9. LANSOPRAZOLE [Concomitant]
     Active Substance: LANSOPRAZOLE
     Indication: Ill-defined disorder
     Dosage: UNK
     Route: 065

REACTIONS (1)
  - Face oedema [Recovered/Resolved]

NARRATIVE: CASE EVENT DATE: 20210217
